FAERS Safety Report 7308601-8 (Version None)
Quarter: 2011Q1

REPORT INFORMATION
  Report Type: 
  Country: None (occurrence: None)
  Receive Date: 20110223
  Receipt Date: 20110124
  Transmission Date: 20110831
  Serious: No
  Sender: FDA-Public Use
  Company Number: US-BAYER-2011-008396

PATIENT
  Sex: Male
  Weight: 95 kg

DRUGS (4)
  1. ALEVE (CAPLET) [Suspect]
     Indication: NASOPHARYNGITIS
     Route: 048
  2. ALEVE (CAPLET) [Suspect]
     Indication: MUSCULOSKELETAL PAIN
  3. ASPIRIN [Concomitant]
  4. ANTIHISTAMINES [Concomitant]

REACTIONS (1)
  - NO ADVERSE EVENT [None]
